FAERS Safety Report 5455110-7 (Version None)
Quarter: 2007Q3

REPORT INFORMATION
  Report Type: 
  Country: None (occurrence: None)
  Receive Date: 20070914
  Receipt Date: 20070831
  Transmission Date: 20080115
  Serious: Yes (Other)
  Sender: FDA-Public Use
  Company Number: 160868ISR

PATIENT
  Age: 54 Year
  Sex: Male

DRUGS (3)
  1. CARBIDOPA AND LEVODOPA [Suspect]
     Dosage: 500 MG
  2. CABERGOLINE [Suspect]
     Dosage: 6 MG
  3. ENTACAPONE [Suspect]
     Dosage: 800 MG

REACTIONS (1)
  - PATHOLOGICAL GAMBLING [None]
